FAERS Safety Report 8880453 (Version 2)
Quarter: 2012Q4

REPORT INFORMATION
  Report Type: Report from Study
  Country: JP (occurrence: JP)
  Receive Date: 20121101
  Receipt Date: 20121205
  Transmission Date: 20130627
  Serious: Yes (Other)
  Sender: FDA-Public Use
  Company Number: JP-JNJFOC-20121015808

PATIENT
  Age: 65 Year
  Sex: Female
  Weight: 46 kg

DRUGS (16)
  1. SIMPONI [Suspect]
     Indication: RHEUMATOID ARTHRITIS
     Route: 058
     Dates: start: 20120821
  2. SIMPONI [Suspect]
     Indication: RHEUMATOID ARTHRITIS
     Route: 058
     Dates: start: 20120403
  3. SIMPONI [Suspect]
     Indication: RHEUMATOID ARTHRITIS
     Route: 058
     Dates: start: 20120529
  4. SIMPONI [Suspect]
     Indication: RHEUMATOID ARTHRITIS
     Route: 058
     Dates: start: 20120724
  5. SIMPONI [Suspect]
     Indication: RHEUMATOID ARTHRITIS
     Route: 058
     Dates: start: 20120626
  6. SIMPONI [Suspect]
     Indication: RHEUMATOID ARTHRITIS
     Route: 058
     Dates: start: 20120501
  7. SIMPONI [Suspect]
     Indication: RHEUMATOID ARTHRITIS
     Route: 058
     Dates: start: 20120918
  8. METHOTREXATE [Concomitant]
     Indication: RHEUMATOID ARTHRITIS
     Dates: start: 20110615
  9. PREDNISOLONE [Concomitant]
     Indication: RHEUMATOID ARTHRITIS
     Route: 048
     Dates: start: 20100908, end: 20120626
  10. PREDNISOLONE [Concomitant]
     Indication: RHEUMATOID ARTHRITIS
     Route: 048
     Dates: start: 20120627
  11. LOXONIN [Concomitant]
     Route: 048
     Dates: start: 20071221
  12. ISCOTIN [Concomitant]
     Indication: PROPHYLAXIS
     Dates: start: 20120314, end: 20121113
  13. PYDOXAL [Concomitant]
     Indication: PROPHYLAXIS
  14. FOLIAMIN [Concomitant]
     Indication: PROPHYLAXIS
  15. TAKEPRON [Concomitant]
     Indication: PROPHYLAXIS
  16. AMLODIN OD [Concomitant]
     Indication: HYPERTENSION
     Route: 048

REACTIONS (1)
  - Liver disorder [Recovering/Resolving]
